FAERS Safety Report 6284313-7 (Version None)
Quarter: 2009Q3

REPORT INFORMATION
  Report Type: 
  Country: None (occurrence: None)
  Receive Date: 20090727
  Receipt Date: 20090716
  Transmission Date: 20100115
  Serious: Yes (Hospitalization)
  Sender: FDA-Public Use
  Company Number: DE-AMGEN-US354448

PATIENT
  Sex: Male
  Weight: 82 kg

DRUGS (4)
  1. ENBREL [Suspect]
     Indication: RHEUMATOID ARTHRITIS
     Route: 058
  2. PREDNISOLONE [Concomitant]
     Dosage: 7.5 MG IN THE MORNING AND 2.5 MG IN THE EVENING
  3. VIGANTOLETTEN [Concomitant]
  4. ARAVA [Concomitant]

REACTIONS (3)
  - ARTHRITIS BACTERIAL [None]
  - INTERVERTEBRAL DISCITIS [None]
  - STAPHYLOCOCCAL SEPSIS [None]
